FAERS Safety Report 4581289-5 (Version None)
Quarter: 2005Q1

REPORT INFORMATION
  Report Type: 
  Country: None (occurrence: None)
  Receive Date: 20050214
  Receipt Date: 20040920
  Transmission Date: 20050727
  Serious: No
  Sender: FDA-Public Use
  Company Number: US-GLAXOSMITHKLINE-A0526454A

PATIENT
  Age: 54 Year
  Sex: Female

DRUGS (7)
  1. LAMICTAL [Suspect]
     Indication: ILL-DEFINED DISORDER
     Dosage: 200MG AT NIGHT
     Route: 048
     Dates: start: 20040601
  2. EFFEXOR [Concomitant]
  3. TOPROL-XL [Concomitant]
  4. PROVIGIL [Concomitant]
  5. KLONOPIN [Concomitant]
  6. LIPITOR [Concomitant]
  7. CALCIUM GLUCONATE [Concomitant]

REACTIONS (2)
  - BURNING SENSATION [None]
  - RASH [None]
